FAERS Safety Report 20217173 (Version 1)
Quarter: 2021Q4

REPORT INFORMATION
  Report Type: Spontaneous
  Country: DE (occurrence: DE)
  Receive Date: 20211222
  Receipt Date: 20211222
  Transmission Date: 20220304
  Serious: Yes (Hospitalization)
  Sender: FDA-Public Use
  Company Number: DE-NOVARTISPH-NVSC2021DE292950

PATIENT
  Age: 57 Year
  Sex: Male
  Weight: 93 kg

DRUGS (7)
  1. MOMETASONE FUROATE [Suspect]
     Active Substance: MOMETASONE FUROATE
     Indication: Dermatitis atopic
     Dosage: UNK
     Route: 061
     Dates: start: 20190709, end: 20191105
  2. BETAMETHASONE DIPROPIONATE [Suspect]
     Active Substance: BETAMETHASONE DIPROPIONATE
     Indication: Dermatitis atopic
     Dosage: UNK
     Route: 061
     Dates: start: 20190723, end: 20190808
  3. PLACEBO [Suspect]
     Active Substance: UNSPECIFIED INGREDIENT
     Indication: Dermatitis atopic
     Dosage: (1 IN D)
     Route: 048
     Dates: start: 20190626, end: 20191004
  4. UPADACITINIB [Suspect]
     Active Substance: UPADACITINIB
     Indication: Dermatitis atopic
     Dosage: 15 MG
     Route: 048
     Dates: start: 20191005
  5. VALSAOR [Concomitant]
     Indication: Hypertension
     Dosage: 320-25 MG (1 IN D)
     Route: 065
     Dates: start: 20140401
  6. ATORVASTATIN [Concomitant]
     Active Substance: ATORVASTATIN
     Indication: Hyperlipidaemia
     Dosage: 10 MG
     Route: 065
     Dates: start: 20150601
  7. DIMETHINDENE [Concomitant]
     Active Substance: DIMETHINDENE
     Indication: Dermatitis atopic
     Dosage: 40 DROP  (1 IN 1 D)
     Route: 048
     Dates: start: 20181101

REACTIONS (2)
  - Device related infection [Recovered/Resolved]
  - Device related infection [Recovered/Resolved]

NARRATIVE: CASE EVENT DATE: 20200517
